FAERS Safety Report 14702296 (Version 3)
Quarter: 2018Q2

REPORT INFORMATION
  Report Type: Spontaneous
  Country: JP (occurrence: JP)
  Receive Date: 20180401
  Receipt Date: 20180514
  Transmission Date: 20180711
  Serious: Yes (Hospitalization, Other)
  Sender: FDA-Public Use
  Company Number: JP-SHIRE-JP201812028

PATIENT

DRUGS (4)
  1. LIALDA [Suspect]
     Active Substance: MESALAMINE
     Indication: COLITIS ULCERATIVE
     Dosage: 4800 MG, 1X/DAY:QD
     Route: 048
     Dates: end: 20180319
  2. LUNESTA [Concomitant]
     Active Substance: ESZOPICLONE
     Indication: MENTAL DISORDER
  3. MESALAZINE [Concomitant]
     Active Substance: MESALAMINE
     Indication: PRODUCT USED FOR UNKNOWN INDICATION
  4. ETIZOLAM [Concomitant]
     Active Substance: ETIZOLAM
     Indication: MENTAL DISORDER

REACTIONS (2)
  - Pancreatitis acute [Recovering/Resolving]
  - Colitis ulcerative [Unknown]

NARRATIVE: CASE EVENT DATE: 20180310
